FAERS Safety Report 4634616-4 (Version None)
Quarter: 2005Q2

REPORT INFORMATION
  Report Type: 
  Country: None (occurrence: None)
  Receive Date: 20050411
  Receipt Date: 20050329
  Transmission Date: 20051028
  Serious: Yes (Hospitalization)
  Sender: FDA-Public Use
  Company Number: 200510841GDS

PATIENT
  Age: 87 Year
  Sex: Female

DRUGS (4)
  1. ADIRO (ACETYLSALICYLIC ACID) [Suspect]
     Indication: ESSENTIAL HYPERTENSION
     Dosage: 100 MG, TOTAL DAILY, ORAL
     Route: 048
  2. LEVOFLOXACIN [Suspect]
     Indication: BRONCHITIS
     Dosage: 500 MG, TOTAL DAILY, ORAL
     Route: 048
     Dates: start: 20050113, end: 20050118
  3. MICARDIS [Concomitant]
  4. HYDREA [Concomitant]

REACTIONS (2)
  - DIARRHOEA HAEMORRHAGIC [None]
  - DRUG INTERACTION [None]
